FAERS Safety Report 10343470 (Version 1)
Quarter: 2014Q3

REPORT INFORMATION
  Report Type: Spontaneous
  Country: FR (occurrence: FR)
  Receive Date: 20140725
  Receipt Date: 20140725
  Transmission Date: 20150326
  Serious: Yes (Hospitalization)
  Sender: FDA-Public Use
  Company Number: FR-ASTRAZENECA-2014SE52586

PATIENT
  Age: 3435 Week
  Sex: Male

DRUGS (5)
  1. METHOTREXATE [Interacting]
     Active Substance: METHOTREXATE
     Route: 041
  2. METHOTREXATE [Interacting]
     Active Substance: METHOTREXATE
     Route: 041
     Dates: start: 20140506
  3. INEXIUM [Suspect]
     Active Substance: ESOMEPRAZOLE
     Route: 048
     Dates: start: 20140611
  4. METHOTREXATE [Interacting]
     Active Substance: METHOTREXATE
     Route: 041
     Dates: start: 20140526
  5. METHOTREXATE [Interacting]
     Active Substance: METHOTREXATE
     Route: 041
     Dates: start: 20140611

REACTIONS (2)
  - Drug interaction [Unknown]
  - Renal failure acute [Recovered/Resolved]

NARRATIVE: CASE EVENT DATE: 20140612
